FAERS Safety Report 16287815 (Version 3)
Quarter: 2021Q2

REPORT INFORMATION
  Report Type: Spontaneous
  Country: US (occurrence: US)
  Receive Date: 20190508
  Receipt Date: 20210629
  Transmission Date: 20210716
  Serious: Yes (Other)
  Sender: FDA-Public Use
  Company Number: US-ASTRAZENECA-2019SE62808

PATIENT
  Age: 33 Year
  Sex: Male

DRUGS (28)
  1. HYDROCODONE [Concomitant]
     Active Substance: HYDROCODONE
  2. BENAZEPRIL [Concomitant]
     Active Substance: BENAZEPRIL HYDROCHLORIDE
  3. PREDNISONE. [Concomitant]
     Active Substance: PREDNISONE
  4. CLINDAMYCIN. [Concomitant]
     Active Substance: CLINDAMYCIN
  5. PRILOSEC OTC [Suspect]
     Active Substance: OMEPRAZOLE MAGNESIUM
     Indication: GASTROOESOPHAGEAL REFLUX DISEASE
     Route: 048
     Dates: start: 200001, end: 201612
  6. PRILOSEC OTC [Suspect]
     Active Substance: OMEPRAZOLE MAGNESIUM
     Indication: GASTROOESOPHAGEAL REFLUX DISEASE
     Route: 048
     Dates: start: 2003, end: 2016
  7. ATORVASTATIN [Concomitant]
     Active Substance: ATORVASTATIN
  8. ALLOPURINOL. [Concomitant]
     Active Substance: ALLOPURINOL
  9. PRILOSEC [Suspect]
     Active Substance: OMEPRAZOLE MAGNESIUM
     Indication: GASTROOESOPHAGEAL REFLUX DISEASE
     Route: 048
     Dates: start: 2000, end: 2016
  10. PRILOSEC [Suspect]
     Active Substance: OMEPRAZOLE MAGNESIUM
     Indication: GASTROOESOPHAGEAL REFLUX DISEASE
     Dosage: GENERIC 20?40 MG ONCE DAILY
     Route: 065
     Dates: start: 20140331, end: 20160805
  11. HYDROCHLORORTHIAZIDE [Concomitant]
  12. ALLEGRA [Concomitant]
     Active Substance: FEXOFENADINE HYDROCHLORIDE
  13. INDOMETHACIN. [Concomitant]
     Active Substance: INDOMETHACIN
  14. BENAZEPRIL [Concomitant]
     Active Substance: BENAZEPRIL HYDROCHLORIDE
  15. ZYVOX [Concomitant]
     Active Substance: LINEZOLID
  16. PRILOSEC [Suspect]
     Active Substance: OMEPRAZOLE MAGNESIUM
     Indication: GASTROOESOPHAGEAL REFLUX DISEASE
     Route: 048
     Dates: start: 200001, end: 201612
  17. FLONASE [Concomitant]
     Active Substance: FLUTICASONE PROPIONATE
  18. NABUMETONE. [Concomitant]
     Active Substance: NABUMETONE
  19. TAMSULOSIN [Concomitant]
     Active Substance: TAMSULOSIN
  20. AUGMENTIN [Concomitant]
     Active Substance: AMOXICILLIN\CLAVULANATE POTASSIUM
  21. AZITHROMYCIN ANHYDROUS. [Concomitant]
     Active Substance: AZITHROMYCIN ANHYDROUS
  22. HYDROXYZINE HYDROCHLORIDE. [Concomitant]
     Active Substance: HYDROXYZINE HYDROCHLORIDE
  23. VENLAFAXINE [Concomitant]
     Active Substance: VENLAFAXINE HYDROCHLORIDE
  24. ONDANSETRON [Concomitant]
     Active Substance: ONDANSETRON
  25. CEPHALEXIN. [Concomitant]
     Active Substance: CEPHALEXIN
  26. SMZ/TMP [Concomitant]
     Active Substance: SULFAMETHOXAZOLE\TRIMETHOPRIM
  27. COLCRYS [Concomitant]
     Active Substance: COLCHICINE
  28. TESTOST [Concomitant]

REACTIONS (2)
  - Chronic kidney disease-mineral and bone disorder [Unknown]
  - Chronic kidney disease [Not Recovered/Not Resolved]

NARRATIVE: CASE EVENT DATE: 2004
